FAERS Safety Report 9332894 (Version 1)
Quarter: 2013Q2

REPORT INFORMATION
  Report Type: Spontaneous
  Country: US (occurrence: US)
  Receive Date: 20130606
  Receipt Date: 20130606
  Transmission Date: 20140414
  Serious: Yes (Other)
  Sender: FDA-Public Use
  Company Number: US-BAYER-2013-066434

PATIENT
  Sex: Female

DRUGS (1)
  1. BETASERON [Suspect]

REACTIONS (9)
  - Cardiac disorder [None]
  - Back pain [None]
  - Hypertension [None]
  - Varicella [None]
  - Musculoskeletal disorder [None]
  - Nerve compression [None]
  - Pain [None]
  - Insomnia [None]
  - Arthritis [None]
